FAERS Safety Report 12699130 (Version 1)
Quarter: 2016Q3

REPORT INFORMATION
  Report Type: Spontaneous
  Country: ES (occurrence: ES)
  Receive Date: 20160830
  Receipt Date: 20160830
  Transmission Date: 20161109
  Serious: Yes (Other)
  Sender: FDA-Public Use
  Company Number: PHHY2016ES112821

PATIENT
  Age: 40 Year
  Sex: Male

DRUGS (1)
  1. SOMATROPIN [Suspect]
     Active Substance: SOMATROPIN
     Indication: MUSCLE MASS
     Dosage: 10 IU, QD
     Route: 065

REACTIONS (2)
  - Acanthosis nigricans [Recovered/Resolved]
  - Intentional product misuse [Unknown]
